FAERS Safety Report 10008683 (Version 2)
Quarter: 2014Q1

REPORT INFORMATION
  Report Type: Spontaneous
  Country: US (occurrence: US)
  Receive Date: 20140312
  Receipt Date: 20140312
  Transmission Date: 20141002
  Serious: No
  Sender: FDA-Public Use
  Company Number: US-INCYTE CORPORATION-2012IN000143

PATIENT
  Sex: Female
  Weight: 55.78 kg

DRUGS (8)
  1. JAKAFI [Suspect]
     Indication: MYELOFIBROSIS
     Dosage: 5 MG, BID
     Route: 048
     Dates: start: 20120126
  2. MYFORTIC [Concomitant]
     Dosage: 720 MG, BID
     Route: 048
  3. PROGRAF [Concomitant]
     Dosage: 1 MG, BID
     Route: 048
  4. ASA [Concomitant]
     Dosage: 81 MG, QD
     Route: 048
  5. COUMADIN [Concomitant]
     Dosage: 12.5 MG/ 10 MG QD
     Route: 048
  6. MVI [Concomitant]
     Dosage: UNK, QD
     Route: 048
     Dates: start: 20120126
  7. FISH OIL [Concomitant]
     Dosage: 1 CAPSULE, QD
     Route: 048
  8. TYLENOL [Concomitant]
     Dosage: 1000 MG, QD
     Route: 048

REACTIONS (2)
  - Headache [Not Recovered/Not Resolved]
  - Dry mouth [Unknown]
